FAERS Safety Report 5560736-6 (Version None)
Quarter: 2007Q4

REPORT INFORMATION
  Report Type: 
  Country: None (occurrence: None)
  Receive Date: 20071215
  Receipt Date: 20071127
  Transmission Date: 20080405
  Serious: No
  Sender: FDA-Public Use
  Company Number: US-ABBOTT-07P-163-0426282-00

PATIENT
  Sex: Male
  Weight: 95.45 kg

DRUGS (2)
  1. HUMIRA [Suspect]
     Indication: PSORIATIC ARTHROPATHY
     Dosage: PFS
     Route: 058
     Dates: start: 20020101, end: 20060101
  2. HUMIRA [Suspect]
     Dosage: PEN
     Route: 058
     Dates: start: 20060101

REACTIONS (1)
  - ACCIDENTAL EXPOSURE [None]
